FAERS Safety Report 4560660-1 (Version None)
Quarter: 2005Q1

REPORT INFORMATION
  Report Type: 
  Country: None (occurrence: None)
  Receive Date: 20050121
  Receipt Date: 20050114
  Transmission Date: 20050727
  Serious: Yes (Hospitalization)
  Sender: FDA-Public Use
  Company Number: DSA_25606_2005

PATIENT
  Age: 82 Year
  Sex: Male

DRUGS (12)
  1. ENALAPRIL MALEATE [Suspect]
     Indication: HYPERTENSION
     Dosage: 5 MG BID PO
     Route: 048
     Dates: end: 20040922
  2. CLONAZEPAM [Suspect]
     Indication: POST HERPETIC NEURALGIA
     Dosage: 8 GTT Q DAY PO
     Route: 048
     Dates: start: 20040913, end: 20040922
  3. CLONAZEPAM [Suspect]
     Indication: POST HERPETIC NEURALGIA
     Dosage: 3 GTT Q DAY PO
     Route: 048
     Dates: start: 20040910, end: 20040912
  4. ACETAMINOPHEN [Concomitant]
  5. ALLOPURINOL [Concomitant]
  6. ASPIRIN [Concomitant]
  7. ATENOLOL [Concomitant]
  8. FELODIPINE [Concomitant]
  9. IRON (UNSPECIFIED) [Concomitant]
  10. RANITIDINE [Concomitant]
  11. SIMVASTATIN (SANOFI) [Concomitant]
  12. URAPIDIL [Concomitant]

REACTIONS (6)
  - BLOOD CREATININE INCREASED [None]
  - BLOOD UREA INCREASED [None]
  - CONFUSIONAL STATE [None]
  - CREATININE RENAL CLEARANCE DECREASED [None]
  - FALL [None]
  - HYPERKALAEMIA [None]
